FAERS Safety Report 9345297 (Version 2)
Quarter: 2014Q1

REPORT INFORMATION
  Report Type: Spontaneous
  Country: US (occurrence: US)
  Receive Date: 20130613
  Receipt Date: 20140312
  Transmission Date: 20141002
  Serious: Yes (Hospitalization)
  Sender: FDA-Public Use
  Company Number: US-B.I. PHARMACEUTICALS,INC./RIDGEFIELD-2013-BI-16246BP

PATIENT
  Sex: Female
  Weight: 90.72 kg

DRUGS (7)
  1. PRADAXA [Suspect]
     Indication: ATRIAL FIBRILLATION
     Route: 048
     Dates: start: 201105, end: 201203
  2. VICODIN [Concomitant]
     Route: 048
  3. COREG [Concomitant]
     Route: 048
  4. LANTUS [Concomitant]
     Route: 065
  5. DIGOXIN [Concomitant]
     Route: 048
  6. SIMVASTATIN [Concomitant]
     Route: 048
  7. FLEXERIL [Concomitant]
     Route: 048

REACTIONS (5)
  - Gastrointestinal haemorrhage [Unknown]
  - Renal failure acute [Unknown]
  - Gastritis erosive [Unknown]
  - Normochromic normocytic anaemia [Unknown]
  - Diabetic ulcer [Unknown]
